FAERS Safety Report 5431258-8 (Version None)
Quarter: 2007Q3

REPORT INFORMATION
  Report Type: 
  Country: None (occurrence: None)
  Receive Date: 20070828
  Receipt Date: 20070822
  Transmission Date: 20080115
  Serious: Yes (Hospitalization)
  Sender: FDA-Public Use
  Company Number: 2007RL000347

PATIENT
  Age: 67 Year
  Sex: Female
  Weight: 63.5036 kg

DRUGS (14)
  1. LOVAZA [Suspect]
     Indication: ARTHRITIS
     Dosage: 2 GM; QD; PO, 2 GM; QOD; PO
     Route: 048
     Dates: start: 20070601, end: 20070701
  2. LOVAZA [Suspect]
     Indication: BLOOD TRIGLYCERIDES INCREASED
     Dosage: 2 GM; QD; PO, 2 GM; QOD; PO
     Route: 048
     Dates: start: 20070601, end: 20070701
  3. LOVAZA [Suspect]
     Indication: ARTHRITIS
     Dosage: 2 GM; QD; PO, 2 GM; QOD; PO
     Route: 048
     Dates: start: 20070701
  4. LOVAZA [Suspect]
     Indication: BLOOD TRIGLYCERIDES INCREASED
     Dosage: 2 GM; QD; PO, 2 GM; QOD; PO
     Route: 048
     Dates: start: 20070701
  5. FORADIL [Suspect]
     Indication: DRUG USE FOR UNKNOWN INDICATION
     Dates: end: 20070803
  6. COMBIVENT /01033501/ [Concomitant]
  7. CORGARD [Concomitant]
  8. SYNTHROID [Concomitant]
  9. PROTONIX /01263201/ [Concomitant]
  10. ASPIRIN [Concomitant]
  11. DOXYCYCLINE [Concomitant]
  12. CARAFATE [Concomitant]
  13. SEREVENT /00954701/ [Concomitant]
  14. LINSEED OIL [Concomitant]

REACTIONS (10)
  - ABDOMINAL PAIN UPPER [None]
  - BACK PAIN [None]
  - CHEST PAIN [None]
  - DIZZINESS [None]
  - DYSPNOEA [None]
  - FATIGUE [None]
  - INSOMNIA [None]
  - NAUSEA [None]
  - OFF LABEL USE [None]
  - REFUSAL OF TREATMENT BY PATIENT [None]
